FAERS Safety Report 10285278 (Version 1)
Quarter: 2014Q3

REPORT INFORMATION
  Report Type: Spontaneous
  Country: US (occurrence: US)
  Receive Date: 20140708
  Receipt Date: 20140708
  Transmission Date: 20150326
  Serious: Yes (Other)
  Sender: FDA-Public Use
  Company Number: US-009507513-1407USA003207

PATIENT
  Age: 3 Year
  Sex: Male

DRUGS (1)
  1. CLARITIN [Suspect]
     Active Substance: LORATADINE
     Indication: URTICARIA
     Dosage: 5 MG, UNKNOWN
     Route: 048

REACTIONS (4)
  - Anaphylactic shock [Unknown]
  - Condition aggravated [Unknown]
  - Off label use [Unknown]
  - Dyspnoea [Unknown]
